FAERS Safety Report 5728095-3 (Version None)
Quarter: 2008Q2

REPORT INFORMATION
  Report Type: 
  Country: None (occurrence: None)
  Receive Date: 20080505
  Receipt Date: 20080423
  Transmission Date: 20081010
  Serious: Yes (Death, Hospitalization)
  Sender: FDA-Public Use
  Company Number: US-PFIZER INC-2007089850

PATIENT
  Sex: Male
  Weight: 71.3 kg

DRUGS (14)
  1. SUTENT [Suspect]
     Indication: THYROID CANCER METASTATIC
     Route: 048
     Dates: start: 20070731, end: 20071024
  2. LOVENOX [Concomitant]
     Route: 048
  3. LEVOTHYROXINE SODIUM [Concomitant]
  4. PRILOSEC [Concomitant]
     Route: 048
  5. METHYLIN [Concomitant]
  6. NEURONTIN [Concomitant]
     Route: 048
  7. ZOFRAN [Concomitant]
     Route: 048
  8. REQUIP [Concomitant]
     Route: 048
  9. ATROVENT [Concomitant]
  10. SENNA [Concomitant]
  11. ACETAMINOPHEN W/ CODEINE [Concomitant]
  12. MORPHINE [Concomitant]
     Dosage: TEXT:2-FREQ:PRN (USED RARELY)
     Route: 048
  13. SYNTHROID [Concomitant]
     Route: 048
  14. BENADRYL [Concomitant]
     Dosage: TEXT:UNKNOWN AMOUNT-FREQ:DAILY
     Route: 048

REACTIONS (2)
  - ARRHYTHMIA [None]
  - UPPER GASTROINTESTINAL HAEMORRHAGE [None]
